FAERS Safety Report 16140989 (Version 1)
Quarter: 2019Q2

REPORT INFORMATION
  Report Type: Spontaneous
  Country: US (occurrence: US)
  Receive Date: 20190330
  Receipt Date: 20190330
  Transmission Date: 20190711
  Serious: Yes (Life-Threatening)
  Sender: FDA-Public Use
  Company Number: None

PATIENT
  Age: 65 Year
  Sex: Male
  Weight: 62.1 kg

DRUGS (1)
  1. AMIODARONE 200MG [Suspect]
     Active Substance: AMIODARONE
     Indication: ATRIAL FIBRILLATION
     Route: 048
     Dates: start: 20180807, end: 20180820

REACTIONS (3)
  - Chest discomfort [None]
  - Toxicity to various agents [None]
  - Pain [None]

NARRATIVE: CASE EVENT DATE: 20180819
